FAERS Safety Report 24041487 (Version 3)
Quarter: 2024Q3

REPORT INFORMATION
  Report Type: Spontaneous
  Country: US (occurrence: US)
  Receive Date: 20240702
  Receipt Date: 20240911
  Transmission Date: 20241016
  Serious: Yes (Other)
  Sender: PFIZER
  Company Number: US-PFIZER INC-202400203779

PATIENT
  Age: 63 Year
  Sex: Male

DRUGS (1)
  1. CIBINQO [Suspect]
     Active Substance: ABROCITINIB
     Indication: Dermatitis atopic
     Dosage: 100 MG ONE TAB PO (ORALLY) QD (ONCE A DAY)
     Route: 048

REACTIONS (7)
  - Acute hepatitis C [Unknown]
  - Staphylococcal scalded skin syndrome [Unknown]
  - Drug ineffective [Unknown]
  - Hepatitis C antibody positive [Unknown]
  - Pruritus [Unknown]
  - Blood immunoglobulin A [Unknown]
  - Rash erythematous [Unknown]
